FAERS Safety Report 21491636 (Version 2)
Quarter: 2022Q4

REPORT INFORMATION
  Report Type: Spontaneous
  Country: FR (occurrence: FR)
  Receive Date: 20221021
  Receipt Date: 20221025
  Transmission Date: 20230113
  Serious: No
  Sender: FDA-Public Use
  Company Number: FR-EMA-20170920-ddevhumanwt-093920736

PATIENT
  Age: 68 Year
  Sex: Male

DRUGS (4)
  1. FENOFIBRATE [Suspect]
     Active Substance: FENOFIBRATE
     Indication: Hypertriglyceridaemia
     Route: 048
  2. TARGRETIN [Concomitant]
     Active Substance: BEXAROTENE
     Indication: Product used for unknown indication
     Route: 065
  3. TARGRETIN [Concomitant]
     Active Substance: BEXAROTENE
     Indication: Product used for unknown indication
     Route: 065
  4. LEVOTHYROXINE [Concomitant]
     Active Substance: LEVOTHYROXINE
     Indication: Hypothyroidism
     Route: 065

REACTIONS (2)
  - Hypertriglyceridaemia [Unknown]
  - Drug ineffective [Unknown]
